FAERS Safety Report 5849204-1 (Version None)
Quarter: 2008Q3

REPORT INFORMATION
  Report Type: 
  Country: None (occurrence: None)
  Receive Date: 20080818
  Receipt Date: 20080818
  Transmission Date: 20090109
  Serious: Yes (Life-Threatening)
  Sender: FDA-Public Use
  Company Number: None

PATIENT
  Sex: Female
  Weight: 85.7298 kg

DRUGS (6)
  1. PREVPAC [Suspect]
     Indication: HELICOBACTER INFECTION
     Dosage: UTD
     Route: 065
     Dates: start: 20080810, end: 20080814
  2. PREVPAC [Suspect]
     Indication: HELICOBACTER PYLORI IDENTIFICATION TEST
     Dosage: UTD
     Route: 065
     Dates: start: 20080810, end: 20080814
  3. NEXIUM [Concomitant]
  4. BENICAR [Concomitant]
  5. VITAMIN B-12 [Concomitant]
  6. MULTI-VITAMIN [Concomitant]

REACTIONS (5)
  - CONFUSIONAL STATE [None]
  - FATIGUE [None]
  - MEMORY IMPAIRMENT [None]
  - MOOD ALTERED [None]
  - SPEECH DISORDER [None]
